FAERS Safety Report 9602511 (Version 1)
Quarter: 2013Q4

REPORT INFORMATION
  Report Type: Spontaneous
  Country: BE (occurrence: BE)
  Receive Date: 20131007
  Receipt Date: 20131007
  Transmission Date: 20140711
  Serious: Yes (Other)
  Sender: FDA-Public Use
  Company Number: BE-SA-2013SA096950

PATIENT
  Sex: Female

DRUGS (6)
  1. CLEXANE [Suspect]
     Indication: PRODUCT USED FOR UNKNOWN INDICATION
     Dosage: DOSE: 2 X 80 MG
     Route: 065
  2. CLEXANE [Suspect]
     Indication: PRODUCT USED FOR UNKNOWN INDICATION
     Route: 065
  3. DOXORUBICIN [Concomitant]
  4. THIOTEPA [Concomitant]
  5. BUSULFAN [Concomitant]
  6. CYCLOPHOSPHAMIDE [Concomitant]

REACTIONS (1)
  - Cerebrovascular accident [Recovered/Resolved]
